FAERS Safety Report 7668513-7 (Version None)
Quarter: 2011Q3

REPORT INFORMATION
  Report Type: 
  Country: None (occurrence: None)
  Receive Date: 20110808
  Receipt Date: 20110801
  Transmission Date: 20111222
  Serious: Yes (Hospitalization, Other)
  Sender: FDA-Public Use
  Company Number: US-BRISTOL-MYERS SQUIBB COMPANY-15938533

PATIENT
  Age: 87 Year
  Sex: Male

DRUGS (2)
  1. COUMADIN [Suspect]
     Indication: THROMBOSIS
     Dosage: STARTED ON 1995 FOR BLOOD CLOT^ IN LUNG
     Dates: start: 20020101
  2. HEPARIN [Suspect]

REACTIONS (5)
  - THROMBOSIS [None]
  - ERYTHEMA [None]
  - MACULAR DEGENERATION [None]
  - HAEMORRHAGIC DIATHESIS [None]
  - INTERNATIONAL NORMALISED RATIO FLUCTUATION [None]
